FAERS Safety Report 18119800 (Version 1)
Quarter: 2020Q3

REPORT INFORMATION
  Report Type: Report from Study
  Country: US (occurrence: US)
  Receive Date: 20200806
  Receipt Date: 20200806
  Transmission Date: 20201103
  Serious: Yes (Hospitalization)
  Sender: FDA-Public Use
  Company Number: PHHO2018US006809

PATIENT
  Age: 68 Year
  Sex: Male
  Weight: 94 kg

DRUGS (7)
  1. DECITABINE. [Suspect]
     Active Substance: DECITABINE
     Indication: MYELODYSPLASTIC SYNDROME
  2. PDR001 [Suspect]
     Active Substance: SPARTALIZUMAB
     Indication: ACUTE MYELOID LEUKAEMIA
     Dosage: 400 MG, Q4W
     Route: 042
     Dates: start: 20180326
  3. DECITABINE. [Suspect]
     Active Substance: DECITABINE
     Indication: ACUTE MYELOID LEUKAEMIA
     Dosage: 20 MG/M2, QD
     Route: 042
     Dates: start: 20180320
  4. CIPROFLOXACIN. [Concomitant]
     Active Substance: CIPROFLOXACIN
     Indication: PRODUCT USED FOR UNKNOWN INDICATION
     Dosage: 500 MG, Q12H
     Route: 048
     Dates: start: 20180320
  5. POSACONAZOLE [Concomitant]
     Active Substance: POSACONAZOLE
     Indication: PRODUCT USED FOR UNKNOWN INDICATION
     Dosage: 300 MG, QD
     Route: 048
     Dates: start: 20180413
  6. PDR001 [Suspect]
     Active Substance: SPARTALIZUMAB
     Indication: MYELODYSPLASTIC SYNDROME
  7. LEVOFLOXACIN. [Concomitant]
     Active Substance: LEVOFLOXACIN
     Indication: SOFT TISSUE INFECTION
     Dosage: 500 MG, QD
     Route: 048
     Dates: start: 20180430

REACTIONS (2)
  - Abscess limb [Recovered/Resolved]
  - Abscess limb [Recovered/Resolved]

NARRATIVE: CASE EVENT DATE: 20180525
